FAERS Safety Report 5422269-7 (Version None)
Quarter: 2007Q3

REPORT INFORMATION
  Report Type: 
  Country: None (occurrence: None)
  Receive Date: 20070820
  Receipt Date: 20070820
  Transmission Date: 20080115
  Serious: Yes (Other)
  Sender: FDA-Public Use
  Company Number: None

PATIENT
  Age: 25 Year
  Sex: Female
  Weight: 61.2356 kg

DRUGS (1)
  1. MONISTAT [Suspect]
     Indication: FUNGAL INFECTION
     Dosage: ONE PREFILLED OVUL APPLICATOR  1   VAG;  EXTERNAL VULVAR CREAM   2X DAY  VAG
     Route: 067
     Dates: start: 20070808, end: 20070808

REACTIONS (8)
  - ABDOMINAL PAIN [None]
  - METRORRHAGIA [None]
  - VAGINAL EXFOLIATION [None]
  - VAGINAL HAEMORRHAGE [None]
  - VAGINAL SWELLING [None]
  - VULVOVAGINAL BURNING SENSATION [None]
  - VULVOVAGINAL DRYNESS [None]
  - VULVOVAGINAL PRURITUS [None]
